FAERS Safety Report 9644563 (Version 1)
Quarter: 2013Q4

REPORT INFORMATION
  Report Type: Spontaneous
  Country: CA (occurrence: CA)
  Receive Date: 20131025
  Receipt Date: 20131025
  Transmission Date: 20140711
  Serious: Yes (Other)
  Sender: FDA-Public Use
  Company Number: CA-ROCHE-1292183

PATIENT
  Age: 62 Year
  Sex: Female

DRUGS (6)
  1. RIVOTRIL [Suspect]
     Indication: PRODUCT USED FOR UNKNOWN INDICATION
     Route: 048
  2. LYRICA [Suspect]
     Indication: PRODUCT USED FOR UNKNOWN INDICATION
     Route: 048
  3. LYRICA [Suspect]
     Route: 048
  4. ZYTRAM XL [Suspect]
     Indication: PRODUCT USED FOR UNKNOWN INDICATION
     Dosage: THERAPY DURATION: 2.0 YEARS
     Route: 048
  5. ZYTRAM XL [Suspect]
     Dosage: THERAPY DURATION: 4.0 MONTHS
     Route: 048
  6. ZYTRAM XL [Suspect]
     Route: 048

REACTIONS (5)
  - Drug withdrawal syndrome [Unknown]
  - Fatigue [Unknown]
  - Miliaria [Unknown]
  - Hyperhidrosis [Unknown]
  - Malaise [Unknown]
